FAERS Safety Report 17445681 (Version 1)
Quarter: 2020Q1

REPORT INFORMATION
  Report Type: Spontaneous
  Country: US (occurrence: US)
  Receive Date: 20200221
  Receipt Date: 20200221
  Transmission Date: 20200409
  Serious: Yes (Life-Threatening)
  Sender: FDA-Public Use
  Company Number: US-ADAREPHARM-2020-US-000008

PATIENT
  Age: 4 Year
  Sex: Female

DRUGS (1)
  1. PROPRANOLOL [Suspect]
     Active Substance: PROPRANOLOL HYDROCHLORIDE
     Indication: HAEMANGIOMA CONGENITAL
     Dosage: 0.9 MG/KG BID

REACTIONS (4)
  - Therapeutic response unexpected [Unknown]
  - Hypoglycaemia [Recovered/Resolved]
  - Sinus bradycardia [Unknown]
  - Product use in unapproved indication [Unknown]
